FAERS Safety Report 11889345 (Version 2)
Quarter: 2016Q1

REPORT INFORMATION
  Report Type: Spontaneous
  Country: FR (occurrence: FR)
  Receive Date: 20160105
  Receipt Date: 20160127
  Transmission Date: 20160526
  Serious: Yes (Disabling)
  Sender: FDA-Public Use
  Company Number: FR-LEO PHARMA-239220

PATIENT
  Age: 76 Year
  Sex: Female
  Weight: 57 kg

DRUGS (1)
  1. PICATO [Suspect]
     Active Substance: INGENOL MEBUTATE
     Indication: ACTINIC KERATOSIS
     Route: 061
     Dates: start: 20151121, end: 20151123

REACTIONS (4)
  - Application site discharge [Recovered/Resolved]
  - Application site inflammation [Recovered/Resolved]
  - Application site scab [Recovered/Resolved]
  - Application site infection [Recovering/Resolving]

NARRATIVE: CASE EVENT DATE: 20151120
